FAERS Safety Report 4486479-8 (Version None)
Quarter: 2004Q4

REPORT INFORMATION
  Report Type: 
  Country: None (occurrence: None)
  Receive Date: 20041021
  Receipt Date: 20041012
  Transmission Date: 20050328
  Serious: Yes (Other)
  Sender: FDA-Public Use
  Company Number: STA-AE-04-MTX-484

PATIENT
  Age: 14 Year
  Sex: Male

DRUGS (8)
  1. METHOTREXATE [Suspect]
     Indication: JUVENILE ARTHRITIS
     Dosage: 20 MG, ORAL
     Route: 048
     Dates: start: 20040907, end: 20040101
  2. METHOTREXATE [Suspect]
     Indication: JUVENILE ARTHRITIS
     Dosage: 20 MG 1 X PER 1 WK, SC
     Route: 058
     Dates: start: 20020530, end: 20040831
  3. REMICADE [Concomitant]
  4. NAPROXEN [Concomitant]
  5. PREDNISOLONE [Concomitant]
  6. LANSOPRAZOLE [Concomitant]
  7. FOLIC ACID [Concomitant]
  8. CALCICHEW-D3 (CALCIUM CARBONATE/COLECALCI FEROL) [Concomitant]

REACTIONS (8)
  - ARTHRALGIA [None]
  - EMOTIONAL DISTRESS [None]
  - FEELING COLD [None]
  - HEADACHE [None]
  - MUSCULOSKELETAL STIFFNESS [None]
  - OEDEMA PERIPHERAL [None]
  - PYREXIA [None]
  - VOMITING [None]
